FAERS Safety Report 15073116 (Version 1)
Quarter: 2018Q2

REPORT INFORMATION
  Report Type: Spontaneous
  Country: FR (occurrence: FR)
  Receive Date: 20180627
  Receipt Date: 20180627
  Transmission Date: 20180711
  Serious: Yes (Other)
  Sender: FDA-Public Use
  Company Number: FR-JNJFOC-20180623269

PATIENT
  Age: 72 Year
  Sex: Male
  Weight: 70 kg

DRUGS (4)
  1. LOPERAMIDE BASE [Suspect]
     Active Substance: LOPERAMIDE
     Route: 048
  2. SMECTA [Suspect]
     Active Substance: MONTMORILLONITE
     Indication: DIARRHOEA
     Route: 048
  3. RACECADOTRIL [Suspect]
     Active Substance: RACECADOTRIL
     Indication: DIARRHOEA
     Route: 048
  4. LOPERAMIDE BASE [Suspect]
     Active Substance: LOPERAMIDE
     Indication: DIARRHOEA
     Route: 048

REACTIONS (2)
  - Faecaloma [Recovered/Resolved]
  - Intestinal obstruction [Recovered/Resolved]

NARRATIVE: CASE EVENT DATE: 20171231
